FAERS Safety Report 5666608-0 (Version None)
Quarter: 2008Q1

REPORT INFORMATION
  Report Type: 
  Country: None (occurrence: None)
  Receive Date: 20080315
  Receipt Date: 20071218
  Transmission Date: 20080703
  Serious: No
  Sender: FDA-Public Use
  Company Number: US-ABBOTT-07P-163-0431359-00

PATIENT
  Sex: Female
  Weight: 41.768 kg

DRUGS (5)
  1. HUMIRA [Suspect]
     Indication: RHEUMATOID ARTHRITIS
     Route: 058
     Dates: start: 20070214, end: 20070401
  2. HUMIRA [Suspect]
     Route: 058
     Dates: start: 20070730, end: 20071218
  3. HUMIRA [Suspect]
     Dates: start: 20071220
  4. ETANERCEPT [Suspect]
     Indication: RHEUMATOID ARTHRITIS
     Route: 050
     Dates: start: 20070401, end: 20070629
  5. METHOTREXATE [Concomitant]
     Indication: RHEUMATOID ARTHRITIS
     Route: 050

REACTIONS (3)
  - CHEST PAIN [None]
  - JOINT SWELLING [None]
  - PITYRIASIS ROSEA [None]
